FAERS Safety Report 25122243 (Version 1)
Quarter: 2025Q1

REPORT INFORMATION
  Report Type: Spontaneous
  Country: US (occurrence: US)
  Receive Date: 20250326
  Receipt Date: 20250326
  Transmission Date: 20250409
  Serious: No
  Sender: CSL BEHRING
  Company Number: US-BEH-2025199730

PATIENT
  Sex: Female

DRUGS (4)
  1. HIZENTRA [Suspect]
     Active Substance: HUMAN IMMUNOGLOBULIN G
     Indication: Chronic inflammatory demyelinating polyradiculoneuropathy
     Dosage: 30 G, QW
     Route: 058
     Dates: start: 202412
  2. LIDOCAINE\PRILOCAINE [Concomitant]
     Active Substance: LIDOCAINE\PRILOCAINE
  3. EPINEPHRINE [Concomitant]
     Active Substance: EPINEPHRINE
  4. DIPHENHYDRAMINE [Concomitant]
     Active Substance: DIPHENHYDRAMINE
     Indication: Hypersensitivity

REACTIONS (8)
  - Peripheral swelling [Unknown]
  - Decreased appetite [Unknown]
  - Joint swelling [Unknown]
  - Infusion site pain [Unknown]
  - Infusion site pruritus [Unknown]
  - Headache [Unknown]
  - Pyrexia [Unknown]
  - Infusion site swelling [Unknown]
